FAERS Safety Report 9641735 (Version 2)
Quarter: 2013Q4

REPORT INFORMATION
  Report Type: Spontaneous
  Country: IT (occurrence: IT)
  Receive Date: 20131023
  Receipt Date: 20131227
  Transmission Date: 20140711
  Serious: Yes (Hospitalization)
  Sender: FDA-Public Use
  Company Number: IT-TEVA-437822ISR

PATIENT
  Age: 48 Year
  Sex: Female

DRUGS (1)
  1. ALPRAZOLAM [Suspect]
     Indication: INSOMNIA
     Dosage: 50 GTT DAILY;
     Route: 048
     Dates: start: 20130925, end: 20130925

REACTIONS (2)
  - Intentional overdose [Recovering/Resolving]
  - Psychomotor skills impaired [Recovering/Resolving]
